FAERS Safety Report 7880260-5 (Version None)
Quarter: 2011Q4

REPORT INFORMATION
  Report Type: 
  Country: None (occurrence: None)
  Receive Date: 20111101
  Receipt Date: 20111020
  Transmission Date: 20120403
  Serious: No
  Sender: FDA-Public Use
  Company Number: US-PFIZER INC-2011263508

PATIENT
  Age: 27 Year
  Sex: Female

DRUGS (2)
  1. ALDACTONE [Suspect]
     Indication: ACNE
     Dosage: 100 MG, UNK
  2. ALDACTONE [Suspect]
     Indication: SKIN DISORDER

REACTIONS (1)
  - OFF LABEL USE [None]
